FAERS Safety Report 9889623 (Version 2)
Quarter: 2014Q1

REPORT INFORMATION
  Report Type: Report from Study
  Country: US (occurrence: US)
  Receive Date: 20140211
  Receipt Date: 20140225
  Transmission Date: 20141002
  Serious: Yes (Hospitalization, Other)
  Sender: FDA-Public Use
  Company Number: US-EXELIXIS-XL18414003990

PATIENT
  Age: 71 Year
  Sex: Male
  Weight: 62.6 kg

DRUGS (17)
  1. XL184 [Suspect]
     Indication: PROSTATE CANCER
     Dosage: 60 MG, QD
     Route: 048
     Dates: start: 20130624
  2. XL184 [Suspect]
     Dosage: 40 MG, QD
     Route: 048
     Dates: end: 20140202
  3. XL184 [Suspect]
     Indication: PROSTATE CANCER
     Dosage: 5 MG, BID
     Route: 048
     Dates: start: 20130624, end: 20140202
  4. AMICAR [Concomitant]
  5. CALCITRATE [Concomitant]
  6. XGEVA [Concomitant]
  7. MIRABEGRON [Concomitant]
  8. MULTIVITAMIN [Concomitant]
  9. UREA [Concomitant]
  10. OMEPRAZOLE [Concomitant]
  11. ONDANSETRON [Concomitant]
  12. OXYCONTIN [Concomitant]
  13. OXYCODONE [Concomitant]
  14. OXYBUTYNIN [Concomitant]
  15. POLYETHYLENE GLYCOL [Concomitant]
  16. POTASSIUM CHLORIDE [Concomitant]
  17. SENNA [Concomitant]

REACTIONS (3)
  - Sepsis [Unknown]
  - Pneumothorax [Unknown]
  - Renal failure acute [Unknown]
